FAERS Safety Report 5721768-8 (Version None)
Quarter: 2008Q2

REPORT INFORMATION
  Report Type: 
  Country: None (occurrence: None)
  Receive Date: 20080429
  Receipt Date: 20080423
  Transmission Date: 20081010
  Serious: Yes (Hospitalization)
  Sender: FDA-Public Use
  Company Number: GB-ROCHE-560535

PATIENT
  Sex: Male
  Weight: 203.2 kg

DRUGS (6)
  1. XENICAL [Suspect]
     Indication: OBESITY
     Dosage: HAD BEEN TAKING THE MEDICATION ON AND OFF FOR OVER A YEAR.
     Route: 048
     Dates: start: 20070101
  2. RAMIPRIL [Concomitant]
     Indication: HYPERTENSION
     Route: 048
  3. LEVOTHYROXINE SODIUM [Concomitant]
     Indication: HYPOTHYROIDISM
     Route: 048
  4. FUROSEMIDE [Concomitant]
     Route: 048
  5. LAMOTRIGINE [Concomitant]
     Indication: EPILEPSY
     Route: 048
  6. FRISIUM [Concomitant]
     Indication: EPILEPSY
     Route: 048

REACTIONS (1)
  - SENSORY LOSS [None]
